FAERS Safety Report 5268671-8 (Version None)
Quarter: 2007Q1

REPORT INFORMATION
  Report Type: 
  Country: None (occurrence: None)
  Receive Date: 20070315
  Receipt Date: 20070315
  Transmission Date: 20070707
  Serious: Yes (Hospitalization, Other)
  Sender: FDA-Public Use
  Company Number: None

PATIENT
  Age: 57 Year
  Sex: Female
  Weight: 68.0396 kg

DRUGS (1)
  1. GADOLINIUM [Suspect]

REACTIONS (14)
  - BEDRIDDEN [None]
  - CENTRAL NERVOUS SYSTEM ABSCESS [None]
  - DIALYSIS [None]
  - DYSPNOEA [None]
  - FINGER DEFORMITY [None]
  - LUNG DISORDER [None]
  - MENINGITIS [None]
  - NEPHROGENIC FIBROSING DERMOPATHY [None]
  - OEDEMA PERIPHERAL [None]
  - PERONEAL NERVE PALSY [None]
  - RENAL FAILURE [None]
  - RENAL FAILURE CHRONIC [None]
  - WALKING AID USER [None]
  - WHEELCHAIR USER [None]
